FAERS Safety Report 7380853-8 (Version None)
Quarter: 2011Q1

REPORT INFORMATION
  Report Type: 
  Country: None (occurrence: None)
  Receive Date: 20110329
  Receipt Date: 20110328
  Transmission Date: 20110831
  Serious: Yes (Other)
  Sender: FDA-Public Use
  Company Number: D0070822A

PATIENT
  Age: 35 Year
  Sex: Male

DRUGS (1)
  1. VIANI FORTE [Suspect]
     Route: 055

REACTIONS (2)
  - DRUG INTERACTION [None]
  - CARDIAC ARREST [None]
